FAERS Safety Report 6291446-8 (Version None)
Quarter: 2009Q3

REPORT INFORMATION
  Report Type: 
  Country: None (occurrence: None)
  Receive Date: 20090730
  Receipt Date: 20090721
  Transmission Date: 20100115
  Serious: Yes (Life-Threatening)
  Sender: FDA-Public Use
  Company Number: FR-PFIZER INC-2009244100

PATIENT

DRUGS (2)
  1. LYRICA [Suspect]
     Indication: PAIN
     Dosage: UNK
  2. SOLU-MEDROL [Suspect]
     Indication: MULTIPLE SCLEROSIS
     Dosage: UNK

REACTIONS (3)
  - OEDEMA PERIPHERAL [None]
  - PHLEBITIS [None]
  - PULMONARY EMBOLISM [None]
